FAERS Safety Report 6628905-1 (Version None)
Quarter: 2010Q1

REPORT INFORMATION
  Report Type: 
  Country: None (occurrence: None)
  Receive Date: 20100311
  Receipt Date: 20100303
  Transmission Date: 20100710
  Serious: Yes (Death)
  Sender: FDA-Public Use
  Company Number: US-AMGEN-QUU397264

PATIENT
  Sex: Female

DRUGS (3)
  1. NPLATE [Suspect]
     Indication: IDIOPATHIC THROMBOCYTOPENIC PURPURA
     Dates: start: 20080922, end: 20090629
  2. CORTICOSTEROIDS [Concomitant]
  3. IMMU-G [Concomitant]

REACTIONS (1)
  - HAEMORRHAGE INTRACRANIAL [None]
